FAERS Safety Report 8352488-1 (Version None)
Quarter: 2012Q2

REPORT INFORMATION
  Report Type: 
  Country: None (occurrence: None)
  Receive Date: 20120511
  Receipt Date: 20120507
  Transmission Date: 20120825
  Serious: Yes (Disabling)
  Sender: FDA-Public Use
  Company Number: PHHO2012CR006961

PATIENT
  Sex: Female
  Weight: 74 kg

DRUGS (8)
  1. ASPIRIN [Concomitant]
     Indication: PROPHYLAXIS
     Dosage: 100 MG, QD
     Route: 048
     Dates: start: 20000101, end: 20120503
  2. ALISKIREN [Suspect]
     Dosage: UNK
     Dates: start: 20100105
  3. FUROSEMIDE [Suspect]
     Dosage: UNK MG, QD
     Route: 048
     Dates: start: 20120504
  4. DIGOXIN [Concomitant]
     Indication: CARDIAC FAILURE
     Dosage: 0.625 MG, QD
     Dates: start: 20000101, end: 20120503
  5. COREG [Concomitant]
     Indication: CARDIAC FAILURE
     Dosage: 25 MG, BID
     Dates: start: 20000101, end: 20120503
  6. FUROSEMIDE [Suspect]
     Dosage: 20 MG, QD
     Route: 048
     Dates: start: 20120509
  7. ENALAPRIL MALEATE [Concomitant]
     Indication: CARDIAC FAILURE
     Dosage: 10 MG, BID
     Dates: start: 20000101, end: 20120503
  8. FUROSEMIDE [Suspect]
     Dosage: 20 MG, TID
     Dates: start: 20100618, end: 20120503

REACTIONS (1)
  - SYNCOPE [None]
